FAERS Safety Report 6599825-6 (Version None)
Quarter: 2010Q1

REPORT INFORMATION
  Report Type: 
  Country: None (occurrence: None)
  Receive Date: 20100224
  Receipt Date: 20100216
  Transmission Date: 20100710
  Serious: Yes (Other)
  Sender: FDA-Public Use
  Company Number: US-ELI_LILLY_AND_COMPANY-US201002004776

PATIENT
  Sex: Male

DRUGS (1)
  1. HUMULIN 70/30 [Suspect]
     Dosage: UNK, AS NEEDED
     Dates: start: 19900101

REACTIONS (8)
  - BLOOD GLUCOSE INCREASED [None]
  - CORONARY ARTERIAL STENT INSERTION [None]
  - CORONARY ARTERY BYPASS [None]
  - KNEE ARTHROPLASTY [None]
  - LUNG NEOPLASM MALIGNANT [None]
  - PAIN [None]
  - POSTOPERATIVE THORACIC PROCEDURE COMPLICATION [None]
  - SNEEZING [None]
